FAERS Safety Report 9477758 (Version 4)
Quarter: 2013Q4

REPORT INFORMATION
  Report Type: Report from Study
  Country: CO (occurrence: CO)
  Receive Date: 20130827
  Receipt Date: 20131111
  Transmission Date: 20140711
  Serious: Yes (Death, Hospitalization)
  Sender: FDA-Public Use
  Company Number: CO-ROCHE-1265784

PATIENT
  Age: 74 Year
  Sex: Male

DRUGS (2)
  1. LUCENTIS [Suspect]
     Indication: PRODUCT USED FOR UNKNOWN INDICATION
     Route: 050
     Dates: start: 20130427
  2. ENALAPRIL [Concomitant]

REACTIONS (4)
  - Pulmonary haematoma [Fatal]
  - Rib fracture [Fatal]
  - Pneumonia [Fatal]
  - Fall [Fatal]
